FAERS Safety Report 26069499 (Version 1)
Quarter: 2025Q4

REPORT INFORMATION
  Report Type: Spontaneous
  Country: US (occurrence: US)
  Receive Date: 20251120
  Receipt Date: 20251120
  Transmission Date: 20260118
  Serious: Yes (Life-Threatening, Other)
  Sender: RANBAXY
  Company Number: US-SUN PHARMACEUTICAL INDUSTRIES LTD-2025R1-537183

PATIENT
  Age: 5 Year
  Sex: Female

DRUGS (1)
  1. DILTIAZEM [Suspect]
     Active Substance: DILTIAZEM
     Indication: Product used for unknown indication
     Dosage: 6 GRAM
     Route: 065

REACTIONS (3)
  - Toxicity to various agents [Recovering/Resolving]
  - Cardiac arrest [Recovering/Resolving]
  - Distributive shock [Recovering/Resolving]
